FAERS Safety Report 18504565 (Version 2)
Quarter: 2020Q4

REPORT INFORMATION
  Report Type: Spontaneous
  Country: RU (occurrence: RU)
  Receive Date: 20201114
  Receipt Date: 20201203
  Transmission Date: 20210114
  Serious: Yes (Other)
  Sender: FDA-Public Use
  Company Number: NVSC2020RU296947

PATIENT
  Age: 33 Year
  Sex: Female

DRUGS (2)
  1. LETROZOLE. [Suspect]
     Active Substance: LETROZOLE
     Indication: PRODUCT USED FOR UNKNOWN INDICATION
     Dosage: 2.5 MG (LONG-TERM USE. TREATMENT CYCLE OF 30 DAYS)
     Route: 048
     Dates: start: 20200113, end: 20200415
  2. AFINITOR [Suspect]
     Active Substance: EVEROLIMUS
     Indication: PRODUCT USED FOR UNKNOWN INDICATION
     Dosage: 10 MG, QD
     Route: 048
     Dates: start: 20200113, end: 20200415

REACTIONS (4)
  - Metastases to lung [Recovered/Resolved]
  - Metastases to bone [Recovered/Resolved]
  - Metastases to liver [Recovered/Resolved]
  - Disease progression [Recovered/Resolved]
